FAERS Safety Report 14298163 (Version 2)
Quarter: 2017Q4

REPORT INFORMATION
  Report Type: Report from Study
  Country: US (occurrence: BR)
  Receive Date: 20171218
  Receipt Date: 20171229
  Transmission Date: 20180321
  Serious: Yes (Other)
  Sender: FDA-Public Use
  Company Number: US-SUNOVION-2017SUN005343

PATIENT
  Sex: Female
  Weight: 65 kg

DRUGS (5)
  1. INDACATEROL AND GLYCOPYRROLATE [Suspect]
     Active Substance: GLYCOPYRROLATE\INDACATEROL MALEATE
     Indication: BRONCHITIS
  2. INDACATEROL AND GLYCOPYRROLATE [Suspect]
     Active Substance: GLYCOPYRROLATE\INDACATEROL MALEATE
     Indication: ASTHMA
  3. LAMITOR [Concomitant]
     Active Substance: LAMOTRIGINE
     Dosage: UNK
  4. INDACATEROL AND GLYCOPYRROLATE [Suspect]
     Active Substance: GLYCOPYRROLATE\INDACATEROL MALEATE
     Indication: EMPHYSEMA
     Dosage: 1 DF, QD (INDACATEROL 110 UG + GLYCOPYRRONIUM BROMIDE 50 UG), QD; RESPIRATORY
     Route: 055
     Dates: start: 201703, end: 201704
  5. ALOIS [Concomitant]
     Active Substance: MEMANTINE
     Dosage: UNK

REACTIONS (10)
  - Product use in unapproved indication [Unknown]
  - Malaise [Unknown]
  - Hypersensitivity [Unknown]
  - Productive cough [Unknown]
  - Product quality issue [Unknown]
  - Musculoskeletal stiffness [Not Recovered/Not Resolved]
  - Pneumonia [Unknown]
  - Dry mouth [Not Recovered/Not Resolved]
  - Catarrh [Unknown]
  - Choking [Not Recovered/Not Resolved]
